FAERS Safety Report 17128270 (Version 1)
Quarter: 2019Q4

REPORT INFORMATION
  Report Type: Spontaneous
  Country: DE (occurrence: DE)
  Receive Date: 20191209
  Receipt Date: 20191209
  Transmission Date: 20200122
  Serious: Yes (Other)
  Sender: FDA-Public Use
  Company Number: DE-TEVA-2019-DE-1147802

PATIENT
  Age: 52 Year
  Sex: Male
  Weight: 106 kg

DRUGS (3)
  1. PRAVASTATIN. [Suspect]
     Active Substance: PRAVASTATIN
     Indication: HYPERLIPIDAEMIA
     Dosage: 20/40MG
     Route: 048
  2. LOVASTATIN. [Suspect]
     Active Substance: LOVASTATIN
     Indication: HYPERLIPIDAEMIA
     Dosage: 40 MILLIGRAM
     Route: 048
  3. ZOCOR [Suspect]
     Active Substance: SIMVASTATIN
     Indication: HYPERLIPIDAEMIA
     Dosage: 20 MILLIGRAM
     Route: 048

REACTIONS (13)
  - Abdominal distension [Recovered/Resolved]
  - Depressed mood [Recovered/Resolved]
  - Mood swings [Recovered/Resolved]
  - Fatigue [Recovered/Resolved]
  - Burning sensation [Recovered/Resolved]
  - Aggression [Recovered/Resolved]
  - Muscle twitching [Recovered/Resolved]
  - Limb discomfort [Recovered/Resolved]
  - Dyspnoea [Recovered/Resolved]
  - Myalgia [Recovered/Resolved]
  - Erectile dysfunction [Recovered/Resolved]
  - Irritability [Recovered/Resolved]
  - Anxiety [Recovered/Resolved]
